FAERS Safety Report 20937562 (Version 1)
Quarter: 2022Q2

REPORT INFORMATION
  Report Type: Spontaneous
  Country: US (occurrence: US)
  Receive Date: 20220609
  Receipt Date: 20220609
  Transmission Date: 20220720
  Serious: Yes (Other)
  Sender: FDA-Public Use
  Company Number: US-HETERO-HET2022US01238

PATIENT
  Age: 9 Year
  Sex: Female

DRUGS (1)
  1. MONTELUKAST [Suspect]
     Active Substance: MONTELUKAST SODIUM
     Indication: Hypersensitivity
     Dosage: 5 MG, TWICE PER WEEK
     Route: 065
     Dates: start: 202201, end: 20220526

REACTIONS (2)
  - Suicidal ideation [Unknown]
  - Mood altered [Unknown]
